FAERS Safety Report 5047049-6 (Version None)
Quarter: 2006Q3

REPORT INFORMATION
  Report Type: 
  Country: None (occurrence: None)
  Receive Date: 20060703
  Receipt Date: 20060621
  Transmission Date: 20061208
  Serious: Yes (Other)
  Sender: FDA-Public Use
  Company Number: 2006078609

PATIENT
  Age: 77 Year
  Sex: Female
  Weight: 54.4316 kg

DRUGS (4)
  1. LYRICA [Suspect]
     Indication: HYPOAESTHESIA
     Dosage: 75  MG (75 MG, 1 IN 1 D)
     Dates: start: 20050101, end: 20060501
  2. LYRICA [Suspect]
     Indication: NEUROPATHY
     Dosage: 75  MG (75 MG, 1 IN 1 D)
     Dates: start: 20050101, end: 20060501
  3. XALATAN [Concomitant]
  4. ACTONEL [Concomitant]

REACTIONS (3)
  - BALANCE DISORDER [None]
  - DIZZINESS [None]
  - HYSTERECTOMY [None]
